FAERS Safety Report 5503384-6 (Version None)
Quarter: 2007Q4

REPORT INFORMATION
  Report Type: 
  Country: None (occurrence: None)
  Receive Date: 20071031
  Receipt Date: 20071024
  Transmission Date: 20080405
  Serious: Yes (Other)
  Sender: FDA-Public Use
  Company Number: CH-WYE-G00516807

PATIENT
  Age: 16 Year
  Sex: Male

DRUGS (3)
  1. EFFEXOR [Suspect]
     Indication: DEPRESSION
     Route: 048
     Dates: start: 20070901
  2. EFFEXOR [Suspect]
     Indication: ATTENTION DEFICIT/HYPERACTIVITY DISORDER
  3. TOPAMAX [Concomitant]
     Dosage: 500 TO 600 MG

REACTIONS (2)
  - CONDITION AGGRAVATED [None]
  - CONVULSION [None]
